FAERS Safety Report 9513439 (Version 1)
Quarter: 2013Q3

REPORT INFORMATION
  Report Type: Spontaneous
  Country: US (occurrence: US)
  Receive Date: 20130910
  Receipt Date: 20130910
  Transmission Date: 20140515
  Serious: No
  Sender: FDA-Public Use
  Company Number: US-TARO-2012P1066356

PATIENT
  Sex: Female

DRUGS (3)
  1. WARFARIN SODIUM TABLETS USP 2MG [Suspect]
  2. WARFARIN SODIUM TABLETS USP 2MG [Suspect]
  3. WARFARIN SODIUM TABLETS USP 4MG [Suspect]

REACTIONS (5)
  - Haematochezia [Unknown]
  - Weight increased [Unknown]
  - Abdominal distension [Unknown]
  - Abdominal pain upper [Unknown]
  - Decreased appetite [Unknown]
